FAERS Safety Report 12214467 (Version 1)
Quarter: 2016Q1

REPORT INFORMATION
  Report Type: Spontaneous
  Country: US (occurrence: US)
  Receive Date: 20160328
  Receipt Date: 20160328
  Transmission Date: 20160526
  Serious: No
  Sender: FDA-Public Use
  Company Number: US-UPSHER-SMITH LABORATORIES, INC.-16000371

PATIENT
  Age: 33 Year
  Sex: Male

DRUGS (6)
  1. QUDEXY XR [Suspect]
     Active Substance: TOPIRAMATE
     Indication: LENNOX-GASTAUT SYNDROME
     Dosage: 50 MG QAM, 100 MG QPM
     Route: 048
     Dates: start: 20160228
  2. DEPAKOTE [Concomitant]
     Active Substance: DIVALPROEX SODIUM
     Indication: LENNOX-GASTAUT SYNDROME
     Dosage: 250 MG BID, 500 MG QHS
     Route: 048
  3. QUDEXY XR [Suspect]
     Active Substance: TOPIRAMATE
     Dosage: 50 MG, BID
     Route: 048
     Dates: start: 20160221, end: 20160227
  4. SEROQUEL [Concomitant]
     Active Substance: QUETIAPINE FUMARATE
     Indication: BEHAVIOUR DISORDER DUE TO A GENERAL MEDICAL CONDITION
     Dosage: 200 MG QAM, 100 MG Q NOON, 200 MG QHS
     Route: 048
  5. RISPERIDONE. [Concomitant]
     Active Substance: RISPERIDONE
     Indication: BEHAVIOUR DISORDER DUE TO A GENERAL MEDICAL CONDITION
     Dosage: 1 MG, TID
     Route: 048
  6. APTIOM [Concomitant]
     Active Substance: ESLICARBAZEPINE ACETATE
     Indication: LENNOX-GASTAUT SYNDROME
     Dosage: 400 MG BID, 800 MG QHS
     Route: 048

REACTIONS (5)
  - Aggression [Not Recovered/Not Resolved]
  - Mood swings [Not Recovered/Not Resolved]
  - Irritability [Not Recovered/Not Resolved]
  - Agitation [Not Recovered/Not Resolved]
  - Nervousness [Not Recovered/Not Resolved]

NARRATIVE: CASE EVENT DATE: 201602
